FAERS Safety Report 16167090 (Version 1)
Quarter: 2019Q2

REPORT INFORMATION
  Report Type: Spontaneous
  Country: US (occurrence: US)
  Receive Date: 20190408
  Receipt Date: 20190408
  Transmission Date: 20190711
  Serious: No
  Sender: FDA-Public Use
  Company Number: US-AMGEN INC.-USASP2019053626

PATIENT

DRUGS (4)
  1. ZONEGRAN [Concomitant]
     Active Substance: ZONISAMIDE
     Indication: VESTIBULAR MIGRAINE
     Dosage: INCREASED THE DOSAGE A FEW TIMES
  2. AIMOVIG [Suspect]
     Active Substance: ERENUMAB-AOOE
     Indication: VESTIBULAR MIGRAINE
     Dosage: UNK
     Route: 065
  3. TOPAMAX [Concomitant]
     Active Substance: TOPIRAMATE
     Indication: VESTIBULAR MIGRAINE
     Dosage: INCREASED THE DOSAGE A FEW TIMES
  4. AIMOVIG [Suspect]
     Active Substance: ERENUMAB-AOOE
     Indication: MIGRAINE

REACTIONS (1)
  - Drug ineffective [Unknown]
